FAERS Safety Report 6895854-3 (Version None)
Quarter: 2010Q3

REPORT INFORMATION
  Report Type: 
  Country: None (occurrence: None)
  Receive Date: 20100802
  Receipt Date: 20100721
  Transmission Date: 20110219
  Serious: Yes (Other)
  Sender: FDA-Public Use
  Company Number: JP-PFIZER INC-2010087274

PATIENT
  Age: 23 Year
  Sex: Female

DRUGS (1)
  1. ZITHROMAC SR [Suspect]
     Indication: OROPHARYNGEAL PAIN
     Dosage: 2 G, 1X/DAY
     Route: 048
     Dates: start: 20100708, end: 20100708

REACTIONS (2)
  - DYSPNOEA [None]
  - FACE OEDEMA [None]
